FAERS Safety Report 6871975-6 (Version None)
Quarter: 2010Q3

REPORT INFORMATION
  Report Type: 
  Country: None (occurrence: None)
  Receive Date: 20100723
  Receipt Date: 20100713
  Transmission Date: 20110219
  Serious: Yes (Death, Hospitalization)
  Sender: FDA-Public Use
  Company Number: US-PFIZER INC-2010087521

PATIENT
  Sex: Male
  Weight: 58.957 kg

DRUGS (1)
  1. REVATIO [Suspect]
     Dosage: UNK MG, UNK
     Route: 048
     Dates: end: 20100101

REACTIONS (2)
  - DEATH [None]
  - DYSPNOEA [None]
